FAERS Safety Report 5499461-9 (Version None)
Quarter: 2007Q4

REPORT INFORMATION
  Report Type: 
  Country: None (occurrence: None)
  Receive Date: 20071026
  Receipt Date: 20071022
  Transmission Date: 20080405
  Serious: Yes (Hospitalization)
  Sender: FDA-Public Use
  Company Number: NZ-BRISTOL-MYERS SQUIBB COMPANY-13951207

PATIENT
  Age: 73 Year
  Sex: Male

DRUGS (3)
  1. WARFARIN SODIUM [Suspect]
     Indication: ATRIAL FIBRILLATION
  2. METOPROLOL TARTRATE [Suspect]
     Indication: ATRIAL FIBRILLATION
  3. DILTIAZEM HCL [Suspect]
     Indication: ATRIAL FIBRILLATION

REACTIONS (6)
  - ANAESTHESIA [None]
  - DYSPHAGIA [None]
  - DYSPHASIA [None]
  - FACIAL NERVE DISORDER [None]
  - HEMIPLEGIA [None]
  - INTERNATIONAL NORMALISED RATIO INCREASED [None]
